FAERS Safety Report 5898018-5 (Version None)
Quarter: 2008Q3

REPORT INFORMATION
  Report Type: 
  Country: None (occurrence: None)
  Receive Date: 20080925
  Receipt Date: 20080813
  Transmission Date: 20090109
  Serious: Yes (Hospitalization)
  Sender: FDA-Public Use
  Company Number: AT-ASTRAZENECA-2008PK00921

PATIENT
  Age: 24814 Day
  Sex: Female
  Weight: 85 kg

DRUGS (6)
  1. ARIMIDEX [Suspect]
     Indication: BREAST CANCER
     Route: 048
     Dates: start: 20060214
  2. COMBITHYREX FORTE [Concomitant]
     Indication: THYROIDECTOMY
     Route: 048
  3. LANNAPRIL FORTE [Concomitant]
     Route: 048
  4. EBRANTIL [Concomitant]
     Route: 048
  5. GLUCOPHAGE [Concomitant]
     Indication: TYPE 1 DIABETES MELLITUS
     Route: 048
  6. INSUMAN [Concomitant]
     Indication: TYPE 1 DIABETES MELLITUS
     Route: 058

REACTIONS (1)
  - SCIATICA [None]
